APPROVED DRUG PRODUCT: TRETINOIN
Active Ingredient: TRETINOIN
Strength: 0.05%
Dosage Form/Route: SOLUTION;TOPICAL
Application: A074873 | Product #001
Applicant: TEVA PHARMACEUTICALS USA
Approved: Jun 19, 1998 | RLD: No | RS: No | Type: DISCN